FAERS Safety Report 12661064 (Version 1)
Quarter: 2016Q3

REPORT INFORMATION
  Report Type: Report from Study
  Country: US (occurrence: US)
  Receive Date: 20160817
  Receipt Date: 20160817
  Transmission Date: 20161109
  Serious: Yes (Death, Hospitalization, Other)
  Sender: FDA-Public Use
  Company Number: US-009507513-1608USA005112

PATIENT
  Age: 56 Year
  Sex: Male
  Weight: 88.1 kg

DRUGS (14)
  1. CITALOPRAM HYDROBROMIDE. [Concomitant]
     Active Substance: CITALOPRAM HYDROBROMIDE
     Indication: DEPRESSION
     Dosage: 20 MG, QD
     Route: 048
     Dates: start: 201601
  2. PREDNISOLONE ACETATE. [Concomitant]
     Active Substance: PREDNISOLONE ACETATE
     Indication: EYE DISORDER
     Dosage: 1-2 DROPS 3 TIME A DAY
     Route: 047
     Dates: start: 20160224, end: 20160229
  3. PREDNISOLONE ACETATE. [Concomitant]
     Active Substance: PREDNISOLONE ACETATE
     Dosage: 1-2 DROPS 3 TIME A DAY
     Route: 047
     Dates: start: 20160307, end: 20160313
  4. HYDROCODONE [Concomitant]
     Active Substance: HYDROCODONE
     Indication: MIGRAINE
     Dosage: 5-325 MG, PRN
     Route: 048
     Dates: start: 201601
  5. ONDANSETRON [Concomitant]
     Active Substance: ONDANSETRON
     Indication: PROPHYLAXIS OF NAUSEA AND VOMITING
     Dosage: 8 MG, PRN
     Route: 048
     Dates: start: 20160308
  6. DIPHENHYDRAMINE HYDROCHLORIDE (+) ERYTHROMYCIN ESTOLATE (+) HYDROCORTI [Concomitant]
     Indication: STOMATITIS
     Dosage: 1 TEASPOON, PRN
     Route: 048
     Dates: start: 20160303
  7. KEPPRA [Concomitant]
     Active Substance: LEVETIRACETAM
     Indication: SEIZURE
     Dosage: 500 MG, BID
     Route: 048
     Dates: start: 20160126
  8. HYZAAR [Concomitant]
     Active Substance: HYDROCHLOROTHIAZIDE\LOSARTAN POTASSIUM
     Indication: HYPERTENSION
     Dosage: 100-25MG, QD
     Route: 048
     Dates: start: 201601
  9. PREDNISOLONE ACETATE. [Concomitant]
     Active Substance: PREDNISOLONE ACETATE
     Dosage: 1-2 DROPS 3 TIME A DAY
     Route: 047
     Dates: start: 20160321, end: 20160323
  10. ABT-414 [Suspect]
     Active Substance: INVESTIGATIONAL PRODUCT
     Indication: GLIOBLASTOMA
     Dosage: D1 OF WEEKS1,3 AND 5 OF 28D CYCLE
     Route: 042
     Dates: start: 20160225, end: 20160323
  11. TEMAZEPAM. [Concomitant]
     Active Substance: TEMAZEPAM
     Indication: INSOMNIA
     Dosage: 30 MG, QD
     Route: 048
     Dates: start: 20160301
  12. TEMODAR [Suspect]
     Active Substance: TEMOZOLOMIDE
     Indication: GLIOBLASTOMA
     Dosage: D1-5 OF 28D CYCLE
     Route: 048
     Dates: start: 20160225, end: 20160323
  13. DEXAMETHASONE. [Concomitant]
     Active Substance: DEXAMETHASONE
     Indication: BRAIN OEDEMA
     Dosage: 4 MG, BID
     Route: 048
     Dates: start: 20160301
  14. PROCHLORPERAZINE MALEATE. [Concomitant]
     Active Substance: PROCHLORPERAZINE MALEATE
     Indication: PROPHYLAXIS OF NAUSEA AND VOMITING
     Dosage: 10 MG, PRN
     Route: 048
     Dates: start: 20160126

REACTIONS (5)
  - Neutropenia [Unknown]
  - Pneumonia [Fatal]
  - Thrombocytopenia [Unknown]
  - Malignant neoplasm progression [Fatal]
  - Febrile neutropenia [Fatal]

NARRATIVE: CASE EVENT DATE: 20160330
